FAERS Safety Report 24113111 (Version 4)
Quarter: 2024Q4

REPORT INFORMATION
  Report Type: Report from Study
  Country: JP (occurrence: JP)
  Receive Date: 20240719
  Receipt Date: 20241204
  Transmission Date: 20250115
  Serious: Yes (Hospitalization)
  Sender: APELLIS PHARMACEUTICALS
  Company Number: JP-biovitrumj-2024-JP-009705

PATIENT
  Weight: 59 kg

DRUGS (4)
  1. EMPAVELI [Suspect]
     Active Substance: PEGCETACOPLAN
     Indication: Paroxysmal nocturnal haemoglobinuria
     Dosage: TWICE A WEEK
     Route: 058
     Dates: start: 20231204, end: 20231228
  2. EMPAVELI [Suspect]
     Active Substance: PEGCETACOPLAN
     Dosage: TWICE A WEEK
     Route: 058
     Dates: start: 20240105, end: 20240219
  3. EMPAVELI [Suspect]
     Active Substance: PEGCETACOPLAN
     Dosage: TWICE A WEEK
     Route: 058
     Dates: start: 20240228, end: 20240430
  4. CYCLOSPORINE [Concomitant]
     Active Substance: CYCLOSPORINE
     Indication: Product used for unknown indication

REACTIONS (1)
  - Sepsis [Recovered/Resolved]

NARRATIVE: CASE EVENT DATE: 20240219
